FAERS Safety Report 6196689-X (Version None)
Quarter: 2009Q2

REPORT INFORMATION
  Report Type: 
  Country: None (occurrence: None)
  Receive Date: 20090518
  Receipt Date: 20090513
  Transmission Date: 20091009
  Serious: Yes (Death)
  Sender: FDA-Public Use
  Company Number: 2009SP010309

PATIENT
  Age: 57 Year
  Sex: Female

DRUGS (4)
  1. BETAMETHASONE [Suspect]
     Indication: DRUG RASH WITH EOSINOPHILIA AND SYSTEMIC SYMPTOMS
     Dosage: 5 MG;PO
     Route: 048
     Dates: start: 20070307
  2. PREDNISOLONE [Concomitant]
  3. SOLU-MEDROL [Concomitant]
  4. VENOGLOBULIN [Concomitant]

REACTIONS (1)
  - UNEVALUABLE EVENT [None]
